FAERS Safety Report 18934904 (Version 1)
Quarter: 2021Q1

REPORT INFORMATION
  Report Type: Report from Study
  Country: US (occurrence: US)
  Receive Date: 20210224
  Receipt Date: 20210224
  Transmission Date: 20210420
  Serious: Yes (Other)
  Sender: FDA-Public Use
  Company Number: NVSC2021US037007

PATIENT
  Sex: Male

DRUGS (2)
  1. ENTRESTO [Suspect]
     Active Substance: SACUBITRIL\VALSARTAN
     Indication: PRODUCT USED FOR UNKNOWN INDICATION
     Dosage: UNK
     Route: 065
  2. ELIQUIS [Concomitant]
     Active Substance: APIXABAN
     Indication: PRODUCT USED FOR UNKNOWN INDICATION
     Dosage: UNK
     Route: 065

REACTIONS (10)
  - End stage renal disease [Unknown]
  - Motor dysfunction [Unknown]
  - Hypoacusis [Unknown]
  - Fall [Unknown]
  - Gait disturbance [Unknown]
  - Emphysema [Unknown]
  - Skin disorder [Unknown]
  - Somnolence [Unknown]
  - Dry skin [Unknown]
  - Bone disorder [Unknown]
